FAERS Safety Report 5546083-7 (Version None)
Quarter: 2007Q4

REPORT INFORMATION
  Report Type: 
  Country: None (occurrence: None)
  Receive Date: 20071211
  Receipt Date: 20070927
  Transmission Date: 20080405
  Serious: No
  Sender: FDA-Public Use
  Company Number: US-BRISTOL-MYERS SQUIBB COMPANY-13922158

PATIENT
  Age: 54 Year
  Sex: Female
  Weight: 100 kg

DRUGS (1)
  1. EMSAM [Suspect]
     Indication: MAJOR DEPRESSION
     Dosage: INTIAL DOSE OF 6MG ON 17 JUL 2007
     Route: 062
     Dates: start: 20070712

REACTIONS (2)
  - APPLICATION SITE REACTION [None]
  - RASH GENERALISED [None]
